FAERS Safety Report 9450629 (Version 2)
Quarter: 2013Q3

REPORT INFORMATION
  Report Type: Spontaneous
  Country: US (occurrence: US)
  Receive Date: 20130809
  Receipt Date: 20130820
  Transmission Date: 20140515
  Serious: No
  Sender: FDA-Public Use
  Company Number: US-009507513-1308USA004356

PATIENT
  Age: 78 Year
  Sex: Female
  Weight: 73.16 kg

DRUGS (3)
  1. CLARITIN REDITABS [Suspect]
     Indication: HYPERSENSITIVITY
     Dosage: 10 MG, PRN
     Route: 048
     Dates: start: 201212, end: 20130721
  2. CLARITIN REDITABS [Suspect]
     Indication: UPPER-AIRWAY COUGH SYNDROME
  3. CLARITIN REDITABS [Suspect]
     Indication: MEDICAL OBSERVATION

REACTIONS (2)
  - Dizziness [Recovered/Resolved]
  - Head discomfort [Recovered/Resolved]
